FAERS Safety Report 21323992 (Version 1)
Quarter: 2022Q3

REPORT INFORMATION
  Report Type: Spontaneous
  Country: SI (occurrence: SI)
  Receive Date: 20220912
  Receipt Date: 20220912
  Transmission Date: 20221027
  Serious: Yes (Other)
  Sender: FDA-Public Use
  Company Number: SI-NOVARTISPH-NVSC2022SI202180

PATIENT
  Sex: Male

DRUGS (1)
  1. COSENTYX [Suspect]
     Active Substance: SECUKINUMAB
     Indication: Psoriasis
     Dosage: 300 MG (5 DOSES IN TOTAL)
     Route: 065
     Dates: start: 20160704

REACTIONS (10)
  - Drug eruption [Unknown]
  - Macule [Recovered/Resolved]
  - Skin plaque [Recovered/Resolved]
  - Skin fissures [Recovered/Resolved]
  - Skin hypertrophy [Unknown]
  - Skin tightness [Recovering/Resolving]
  - Skin burning sensation [Recovering/Resolving]
  - Skin exfoliation [Unknown]
  - Erythema [Unknown]
  - Chills [Recovering/Resolving]
